FAERS Safety Report 13784343 (Version 1)
Quarter: 2017Q3

REPORT INFORMATION
  Report Type: Spontaneous
  Country: IT (occurrence: IT)
  Receive Date: 20170724
  Receipt Date: 20170724
  Transmission Date: 20171127
  Serious: Yes (Life-Threatening)
  Sender: FDA-Public Use
  Company Number: PHHY2017IT105418

PATIENT
  Age: 66 Year
  Sex: Male

DRUGS (1)
  1. AMOXICILLIN. [Suspect]
     Active Substance: AMOXICILLIN
     Indication: PRODUCT USED FOR UNKNOWN INDICATION
     Dosage: 1 DF, TOTAL
     Route: 065
     Dates: start: 20170620, end: 20170620

REACTIONS (6)
  - Syncope [Recovering/Resolving]
  - Dyspnoea [Recovering/Resolving]
  - Anal incontinence [Recovering/Resolving]
  - Urticaria [Recovering/Resolving]
  - Head injury [Recovering/Resolving]
  - Urinary incontinence [Recovering/Resolving]

NARRATIVE: CASE EVENT DATE: 20170620
